FAERS Safety Report 9444921 (Version 1)
Quarter: 2013Q3

REPORT INFORMATION
  Report Type: Report from Study
  Country: GB (occurrence: GB)
  Receive Date: 20130807
  Receipt Date: 20130807
  Transmission Date: 20140515
  Serious: Yes (Hospitalization, Other)
  Sender: FDA-Public Use
  Company Number: PHHY2013GB081145

PATIENT
  Age: 14 Year
  Sex: Male

DRUGS (39)
  1. VINORELBINE [Suspect]
     Indication: PRODUCT USED FOR UNKNOWN INDICATION
     Dosage: 29 MG, UNK
     Route: 040
     Dates: start: 20130531
  2. VINORELBINE [Suspect]
     Dosage: UNK
  3. DOXORUBICIN [Suspect]
     Indication: NEOPLASM MALIGNANT
     Dosage: 48 MG, QD
     Route: 042
     Dates: start: 20121102, end: 20121102
  4. DOXORUBICIN [Suspect]
     Dosage: 48 MG, QD
     Route: 042
     Dates: start: 20121102, end: 20121102
  5. DOXORUBICIN [Suspect]
     Dosage: 48 MG, UNK
     Route: 042
     Dates: start: 20121103
  6. DOXORUBICIN [Suspect]
     Dosage: 45 MG, QD
     Route: 042
     Dates: start: 20121123
  7. IFOSFAMIDE [Suspect]
     Indication: NEOPLASM MALIGNANT
     Route: 042
     Dates: start: 20121102
  8. IFOSFAMIDE [Suspect]
     Dosage: 4650 MG, UNK
     Route: 042
     Dates: start: 20121102
  9. IFOSFAMIDE [Suspect]
     Dosage: 4800 MG, UNK
     Route: 042
     Dates: start: 20121123
  10. IFOSFAMIDE [Suspect]
     Dosage: 4800 MG, UNK
     Route: 042
     Dates: start: 20121123
  11. IFOSFAMIDE [Suspect]
     Dates: start: 20130215
  12. CYCLOPHOSPHAMIDE [Suspect]
     Indication: NEOPLASM MALIGNANT
     Dosage: 29 MG, UNK
     Route: 048
     Dates: start: 20130531, end: 20130701
  13. VINCRISTINE [Suspect]
     Indication: NEOPLASM MALIGNANT
     Dosage: 2 MG, UNK
     Route: 040
     Dates: start: 20121123
  14. VINCRISTINE [Suspect]
     Dosage: 2 MG, UNK
     Route: 040
     Dates: start: 20121130
  15. VINCRISTINE [Suspect]
     Dosage: 2 MG, UNK
     Route: 040
     Dates: start: 20121102
  16. VINCRISTINE [Suspect]
     Dates: start: 20130215
  17. DACTINOMYCIN [Suspect]
     Indication: NEOPLASM MALIGNANT
     Dosage: 2 MG, UNK
     Route: 040
     Dates: start: 20121102
  18. DACTINOMYCIN [Suspect]
     Dosage: 2 MG, UNK
     Route: 040
     Dates: start: 20121123
  19. DACTINOMYCIN [Suspect]
     Dates: start: 20130215
  20. LACTULOSE [Concomitant]
  21. MACROGOL [Concomitant]
     Dates: start: 20121101
  22. POTASSIUM CHLORIDE [Concomitant]
     Dates: start: 20121101
  23. SODIUM BICARBONATE [Concomitant]
     Dates: start: 20121101
  24. SODIUM CHLORIDE [Concomitant]
     Dates: start: 20121101
  25. SENNOSIDES A AND B [Concomitant]
     Dates: start: 20121101
  26. ONDANSETRON [Concomitant]
     Dates: start: 20121102
  27. CYCLIZINE [Concomitant]
     Dates: start: 20121102
  28. PARACETAMOL [Concomitant]
     Dates: start: 20121102
  29. MORPHINE SULFATE [Concomitant]
     Dates: start: 20121101
  30. BISACODYL [Concomitant]
     Dates: start: 20121101
  31. GABAPENTIN [Concomitant]
     Dates: start: 20130607
  32. CETIRIZINE [Concomitant]
     Dates: start: 20130628
  33. ENOXOLONE [Concomitant]
     Dates: start: 20121109
  34. HYALURONATE SODIUM [Concomitant]
     Dates: start: 20121109
  35. POLYVIDONE [Concomitant]
     Dates: start: 20121109
  36. SULFAMETHOXAZOLE [Concomitant]
     Dates: start: 20121101
  37. SULFAMETHOXAZOLE [Concomitant]
     Dates: start: 20121025
  38. TRIMETHOPRIM [Concomitant]
     Dates: start: 20121101
  39. TRIMETHOPRIM [Concomitant]
     Dates: start: 20121025

REACTIONS (6)
  - Headache [Recovered/Resolved]
  - Chills [Unknown]
  - Febrile neutropenia [Recovered/Resolved]
  - Tachycardia [Recovered/Resolved]
  - Pyrexia [Recovered/Resolved]
  - Sepsis [Recovered/Resolved]
